FAERS Safety Report 5525432-X (Version None)
Quarter: 2007Q4

REPORT INFORMATION
  Report Type: 
  Country: None (occurrence: None)
  Receive Date: 20071126
  Receipt Date: 20071114
  Transmission Date: 20080405
  Serious: Yes (Death, Other)
  Sender: FDA-Public Use
  Company Number: CN-PURDUE-MAG_2007_0000607

PATIENT
  Age: 69 Year
  Sex: Female

DRUGS (1)
  1. OXYCODONE HCL [Suspect]
     Indication: METASTATIC PAIN
     Dosage: 10 MG, DAILY
     Route: 048
     Dates: start: 20070706, end: 20070721

REACTIONS (2)
  - ANOREXIA [None]
  - MALIGNANT NEOPLASM PROGRESSION [None]
